FAERS Safety Report 18389837 (Version 2)
Quarter: 2023Q2

REPORT INFORMATION
  Report Type: Report from Study
  Country: GB (occurrence: GB)
  Receive Date: 20201015
  Receipt Date: 20230414
  Transmission Date: 20230722
  Serious: Yes (Other)
  Sender: FDA-Public Use
  Company Number: GB-NOVARTISPH-NVSC2020GB275525

PATIENT
  Age: 73 Year
  Sex: Female

DRUGS (3)
  1. KISQALI [Suspect]
     Active Substance: RIBOCICLIB
     Indication: Breast cancer
     Dosage: 600 MG, QD
     Route: 048
     Dates: start: 20200828, end: 20200830
  2. KISQALI [Suspect]
     Active Substance: RIBOCICLIB
     Dosage: 200 MG, QD
     Route: 048
     Dates: start: 20200928
  3. KISQALI [Suspect]
     Active Substance: RIBOCICLIB
     Dosage: UNK (FIRST LINE PLUS AI)
     Route: 065
     Dates: start: 202210

REACTIONS (3)
  - Renal impairment [Recovering/Resolving]
  - Lymphoedema [Unknown]
  - Blood disorder [Unknown]

NARRATIVE: CASE EVENT DATE: 20200828
